FAERS Safety Report 6923413-2 (Version None)
Quarter: 2010Q3

REPORT INFORMATION
  Report Type: 
  Country: None (occurrence: None)
  Receive Date: 20100813
  Receipt Date: 20100803
  Transmission Date: 20110219
  Serious: Yes (Other)
  Sender: FDA-Public Use
  Company Number: JP-PFIZER INC-2010091602

PATIENT
  Age: 79 Year
  Sex: Male
  Weight: 48.9 kg

DRUGS (7)
  1. LYRICA [Suspect]
     Indication: POST HERPETIC NEURALGIA
     Dosage: 150 MG PER DAY
     Route: 048
     Dates: start: 20100714, end: 20100720
  2. METHYCOBAL [Concomitant]
     Indication: HYPOAESTHESIA
     Dosage: UNK
     Route: 048
     Dates: start: 20090101
  3. LOXONIN [Concomitant]
     Indication: PAIN
     Dosage: 60 MG, 1X/DAY
     Route: 048
     Dates: start: 20090101
  4. MUCOSTA [Concomitant]
     Indication: GASTRITIS PROPHYLAXIS
     Dosage: UNK
     Route: 048
     Dates: start: 20090101
  5. TEGRETOL [Concomitant]
     Dosage: UNK
     Dates: start: 20090101
  6. ARICEPT [Concomitant]
     Indication: SENILE DEMENTIA
     Dosage: 5 MG, 1X/DAY
     Route: 048
  7. NEUROTROPIN [Concomitant]
     Indication: PAIN
     Dosage: UNK
     Route: 042

REACTIONS (2)
  - EPILEPSY [None]
  - PAIN [None]
